FAERS Safety Report 23796720 (Version 2)
Quarter: 2024Q2

REPORT INFORMATION
  Report Type: Spontaneous
  Country: US (occurrence: US)
  Receive Date: 20240430
  Receipt Date: 20240621
  Transmission Date: 20240716
  Serious: Yes (Other)
  Sender: FDA-Public Use
  Company Number: US-AUROBINDO-AUR-APL-2024-019340

PATIENT
  Age: 64 Year
  Sex: Male

DRUGS (6)
  1. METOPROLOL [Suspect]
     Active Substance: METOPROLOL
     Indication: Heart failure with reduced ejection fraction
     Dosage: 50 MILLIGRAM, DAILY
     Route: 065
  2. SPIRONOLACTONE [Suspect]
     Active Substance: SPIRONOLACTONE
     Indication: Heart failure with reduced ejection fraction
     Dosage: 50 MILLIGRAM, DAILY
     Route: 065
  3. SACUBITRIL\VALSARTAN [Suspect]
     Active Substance: SACUBITRIL\VALSARTAN
     Indication: Heart failure with reduced ejection fraction
     Dosage: UNK, TWO TIMES A DAY (97-103MG)
     Route: 065
  4. SACUBITRIL\VALSARTAN [Suspect]
     Active Substance: SACUBITRIL\VALSARTAN
     Dosage: 97 MILLIGRAM, TWO TIMES A DAY
     Route: 065
  5. SACUBITRIL\VALSARTAN [Suspect]
     Active Substance: SACUBITRIL\VALSARTAN
     Dosage: 103 MILLIGRAM, TWO TIMES A DAY
     Route: 065
  6. DAPAGLIFLOZIN [Suspect]
     Active Substance: DAPAGLIFLOZIN
     Indication: Heart failure with reduced ejection fraction
     Dosage: 10 MILLIGRAM, DAILY
     Route: 065

REACTIONS (3)
  - Metabolic acidosis [Recovering/Resolving]
  - Hyperkalaemia [Recovered/Resolved]
  - Ventricular tachycardia [Recovered/Resolved]
